FAERS Safety Report 8044034-7 (Version None)
Quarter: 2012Q1

REPORT INFORMATION
  Report Type: 
  Country: None (occurrence: None)
  Receive Date: 20120113
  Receipt Date: 20120105
  Transmission Date: 20120608
  Serious: Yes (Other)
  Sender: FDA-Public Use
  Company Number: US-BAYER-2011-075206

PATIENT
  Age: 18 Year
  Sex: Female
  Weight: 56.689 kg

DRUGS (5)
  1. YAZ [Suspect]
     Indication: ACNE
     Dosage: UNK
     Route: 048
     Dates: start: 20090601, end: 20090701
  2. MOTRIN [Concomitant]
     Dosage: UNK
  3. YAZ [Suspect]
     Indication: PREMENSTRUAL SYNDROME
  4. NORETHINDRONE [Concomitant]
     Dosage: 0.35 MG, UNK
     Dates: start: 20091015
  5. MICRONOR [Concomitant]
     Dosage: UNK
     Dates: start: 20090701

REACTIONS (3)
  - CEREBROVASCULAR ACCIDENT [None]
  - INJURY [None]
  - MIGRAINE [None]
